FAERS Safety Report 26137046 (Version 1)
Quarter: 2025Q4

REPORT INFORMATION
  Report Type: Report from Study
  Country: EU (occurrence: EU)
  Receive Date: 20251209
  Receipt Date: 20251209
  Transmission Date: 20260118
  Serious: Yes (Other)
  Sender: ABBVIE
  Company Number: EU-ABBVIE-6578664

PATIENT
  Age: 73 Year
  Sex: Male

DRUGS (1)
  1. FOSCARBIDOPA\FOSLEVODOPA [Suspect]
     Active Substance: FOSCARBIDOPA\FOSLEVODOPA
     Indication: Parkinson^s disease
     Dosage: DAILY DOSE: 1,627.2MG, CRL: 0.17 ML/H, CRB: 0.32 ML/H, CRH: 0.34 ML/H, ED: 0.15 ML LD: 0.1 ML.
     Route: 058
     Dates: start: 20250131

REACTIONS (3)
  - Haematoma [Recovered/Resolved]
  - Fall [Recovered/Resolved]
  - Infusion site reaction [Not Recovered/Not Resolved]

NARRATIVE: CASE EVENT DATE: 20250101
